FAERS Safety Report 5677218-3 (Version None)
Quarter: 2008Q1

REPORT INFORMATION
  Report Type: 
  Country: None (occurrence: None)
  Receive Date: 20080324
  Receipt Date: 20080313
  Transmission Date: 20080703
  Serious: Yes (Hospitalization)
  Sender: FDA-Public Use
  Company Number: BR-GILEAD-2008-0015670

PATIENT
  Sex: Male
  Weight: 5.2 kg

DRUGS (6)
  1. VIREAD [Suspect]
     Indication: DRUG EXPOSURE DURING PREGNANCY
     Route: 064
     Dates: start: 20070917, end: 20070917
  2. FERROUS SULFATE TAB [Concomitant]
     Route: 048
  3. VITAMIN CAP [Concomitant]
     Route: 048
  4. DOMPERIDONE [Concomitant]
     Route: 048
  5. NITROFURANTOIN [Concomitant]
     Route: 048
  6. ZIDOVUDINE [Concomitant]
     Indication: DRUG EXPOSURE DURING PREGNANCY
     Route: 064
     Dates: start: 20070917, end: 20070917

REACTIONS (1)
  - FAILURE TO THRIVE [None]
